FAERS Safety Report 12517514 (Version 2)
Quarter: 2016Q3

REPORT INFORMATION
  Report Type: Spontaneous
  Country: JP (occurrence: JP)
  Receive Date: 20160630
  Receipt Date: 20160727
  Transmission Date: 20161109
  Serious: Yes (Hospitalization)
  Sender: FDA-Public Use
  Company Number: JP-B.I. PHARMACEUTICALS,INC./RIDGEFIELD-2016-BI-42122NB

PATIENT
  Age: 55 Year
  Sex: Male

DRUGS (1)
  1. PERSANTINE [Suspect]
     Active Substance: DIPYRIDAMOLE
     Indication: THROMBOSIS PROPHYLAXIS
     Dosage: 300 MG
     Route: 048

REACTIONS (2)
  - Peritonsillitis [Unknown]
  - Pharyngitis [Unknown]
